FAERS Safety Report 5368769-X (Version None)
Quarter: 2007Q2

REPORT INFORMATION
  Report Type: 
  Country: None (occurrence: None)
  Receive Date: 20070625
  Receipt Date: 20070618
  Transmission Date: 20071010
  Serious: Yes (Death, Hospitalization)
  Sender: FDA-Public Use
  Company Number: US-BRACCO-BDI-009739

PATIENT
  Sex: Female

DRUGS (2)
  1. ISOVUE-128 [Suspect]
     Route: 042
     Dates: start: 20070413, end: 20070413
  2. ISOVUE-128 [Suspect]
     Route: 042
     Dates: start: 20070413, end: 20070413

REACTIONS (1)
  - ANAPHYLACTIC SHOCK [None]
